FAERS Safety Report 12320282 (Version 3)
Quarter: 2016Q2

REPORT INFORMATION
  Report Type: Report from Study
  Country: US (occurrence: US)
  Receive Date: 20160501
  Receipt Date: 20160523
  Transmission Date: 20160815
  Serious: No
  Sender: FDA-Public Use
  Company Number: PHEH2016US010591

PATIENT
  Sex: Male

DRUGS (1)
  1. EXTAVIA [Suspect]
     Active Substance: INTERFERON BETA-1B
     Indication: MULTIPLE SCLEROSIS
     Dosage: 0.25 MG (1 ML)
     Route: 058

REACTIONS (16)
  - Pain in extremity [Unknown]
  - Influenza like illness [Unknown]
  - Anger [Unknown]
  - Joint swelling [Unknown]
  - Peripheral swelling [Unknown]
  - Muscular weakness [Unknown]
  - Swelling [Unknown]
  - Insomnia [Unknown]
  - Arthralgia [Unknown]
  - Scab [Unknown]
  - Sexual dysfunction [Unknown]
  - Malaise [Unknown]
  - Heart rate increased [Unknown]
  - Dry mouth [Unknown]
  - Injection site pain [Unknown]
  - Depression [Unknown]
